FAERS Safety Report 6934435-X (Version None)
Quarter: 2010Q3

REPORT INFORMATION
  Report Type: 
  Country: None (occurrence: None)
  Receive Date: 20100820
  Receipt Date: 20100817
  Transmission Date: 20110219
  Serious: Yes (Hospitalization)
  Sender: FDA-Public Use
  Company Number: B0670266A

PATIENT
  Sex: Female

DRUGS (12)
  1. AMOXICILLIN [Suspect]
     Indication: COUGH
     Route: 065
     Dates: start: 20091221, end: 20091227
  2. AMLODIPINE [Concomitant]
     Dosage: 5MG PER DAY
     Route: 065
  3. RAMIPRIL [Concomitant]
     Dosage: 2.5MG PER DAY
     Route: 065
  4. METFORMIN [Concomitant]
     Dosage: 850MG THREE TIMES PER DAY
     Route: 065
  5. NOVONORM [Concomitant]
     Dosage: 2MG THREE TIMES PER DAY
     Route: 065
  6. LEVOTHYROXINE SODIUM [Concomitant]
     Dosage: 175MCG PER DAY
     Route: 065
  7. BETAMETHASONE DIPROPIONATE + CALCIPOTRIOL [Concomitant]
     Route: 065
  8. CLARITIN [Concomitant]
     Dosage: 1UNIT SEE DOSAGE TEXT
     Route: 065
  9. ETIOVEN [Concomitant]
     Dosage: 30MG SEE DOSAGE TEXT
     Route: 065
  10. DEXERYL (FRANCE) [Concomitant]
     Route: 065
  11. PROPOFAN [Concomitant]
     Route: 065
  12. POLYKARAYA [Concomitant]
     Dosage: 1UNIT THREE TIMES PER DAY
     Route: 065

REACTIONS (13)
  - ACUTE GENERALISED EXANTHEMATOUS PUSTULOSIS [None]
  - CONDITION AGGRAVATED [None]
  - CONJUNCTIVAL HYPERAEMIA [None]
  - PARAKERATOSIS [None]
  - PUSTULAR PSORIASIS [None]
  - PYREXIA [None]
  - RASH MACULAR [None]
  - RASH MACULO-PAPULAR [None]
  - RASH PUSTULAR [None]
  - SKIN DISCOLOURATION [None]
  - SKIN DISORDER [None]
  - SKIN EXFOLIATION [None]
  - SKIN LESION [None]
